FAERS Safety Report 5301814-6 (Version None)
Quarter: 2007Q2

REPORT INFORMATION
  Report Type: 
  Country: None (occurrence: None)
  Receive Date: 20070419
  Receipt Date: 20070405
  Transmission Date: 20071010
  Serious: Yes (Other)
  Sender: FDA-Public Use
  Company Number: PHRM2007FR01205

PATIENT
  Age: 34 Year
  Sex: Female

DRUGS (2)
  1. EXJADE [Suspect]
     Indication: IRON OVERLOAD
     Dosage: 1 DF, QD
     Route: 048
     Dates: start: 20070226, end: 20070227
  2. RED BLOOD CELLS [Concomitant]
     Indication: ERYTHROPOIESIS ABNORMAL

REACTIONS (5)
  - EYELID OEDEMA [None]
  - FACE OEDEMA [None]
  - PHARYNGOLARYNGEAL PAIN [None]
  - PRURITUS GENERALISED [None]
  - URTICARIA LOCALISED [None]
